FAERS Safety Report 13962558 (Version 1)
Quarter: 2017Q3

REPORT INFORMATION
  Report Type: Spontaneous
  Country: US (occurrence: US)
  Receive Date: 20170913
  Receipt Date: 20170913
  Transmission Date: 20171128
  Serious: No
  Sender: FDA-Public Use
  Company Number: US-TEVA-698864USA

PATIENT
  Sex: Male

DRUGS (1)
  1. ISONIAZID. [Suspect]
     Active Substance: ISONIAZID
     Route: 065

REACTIONS (3)
  - Vomiting [Unknown]
  - Dyspepsia [Unknown]
  - Nausea [Unknown]
